FAERS Safety Report 10020731 (Version 1)
Quarter: 2014Q1

REPORT INFORMATION
  Report Type: Spontaneous
  Country: US (occurrence: US)
  Receive Date: 20140319
  Receipt Date: 20140319
  Transmission Date: 20141002
  Serious: Yes (Other)
  Sender: FDA-Public Use
  Company Number: US-DRREDDYS-USA/USA/13/0034052

PATIENT
  Age: 35 Year
  Sex: Female
  Weight: 113 kg

DRUGS (6)
  1. QUETIAPINE FUMARATE TABLETS [Suspect]
     Indication: PRODUCT USED FOR UNKNOWN INDICATION
     Route: 065
  2. VENLAFAXINE HYDROCHLORIDE ER CAPSULES, 37.5 MG (BASE) [Suspect]
     Indication: PRODUCT USED FOR UNKNOWN INDICATION
     Route: 065
  3. LAMOTRIGINE TABLETS [Suspect]
     Indication: PRODUCT USED FOR UNKNOWN INDICATION
     Route: 065
  4. FENTANYL [Suspect]
     Indication: ANAESTHESIA
     Route: 042
  5. LIDOCAINE [Suspect]
     Indication: ANAESTHESIA
     Route: 065
  6. PROPOFOL [Suspect]
     Indication: ANAESTHESIA
     Route: 065

REACTIONS (1)
  - Hypotension [Recovered/Resolved]
